FAERS Safety Report 8304796-8 (Version None)
Quarter: 2012Q2

REPORT INFORMATION
  Report Type: 
  Country: None (occurrence: None)
  Receive Date: 20120423
  Receipt Date: 20120418
  Transmission Date: 20120825
  Serious: Yes (Life-Threatening)
  Sender: FDA-Public Use
  Company Number: FR-ASTRAZENECA-2012SE25725

PATIENT
  Age: 18459 Day
  Sex: Female

DRUGS (11)
  1. DIPRIVAN [Suspect]
     Indication: INDUCTION OF ANAESTHESIA
     Route: 042
     Dates: start: 20120309, end: 20120309
  2. ULTIVA [Suspect]
     Indication: INDUCTION OF ANAESTHESIA
     Route: 042
     Dates: start: 20120309, end: 20120309
  3. FERROUS SULFATE TAB [Concomitant]
  4. ATORVASTATIN [Concomitant]
  5. AUGMENTIN '125' [Suspect]
     Indication: ANTIBIOTIC PROPHYLAXIS
     Route: 042
     Dates: start: 20120309, end: 20120309
  6. IOMERON-150 [Suspect]
     Indication: INDUCTION OF ANAESTHESIA
     Route: 042
     Dates: start: 20120309, end: 20120309
  7. PANTOPRAZOLE SODIUM [Concomitant]
  8. ACETAMINOPHEN [Concomitant]
  9. ZOLPIDEM TARTRATE [Concomitant]
  10. TRACRIUM [Suspect]
     Indication: INDUCTION OF ANAESTHESIA
     Route: 042
     Dates: start: 20120309, end: 20120309
  11. PP,B1, B6  VITAMINES [Concomitant]

REACTIONS (1)
  - ANAPHYLACTIC SHOCK [None]
